FAERS Safety Report 9072869 (Version 1)
Quarter: 2013Q1

REPORT INFORMATION
  Report Type: Report from Study
  Country: US (occurrence: US)
  Receive Date: 20130129
  Receipt Date: 20130129
  Transmission Date: 20140127
  Serious: Yes (Hospitalization)
  Sender: FDA-Public Use
  Company Number: US-ABBOTT-12P-163-0928015-00

PATIENT
  Sex: Female
  Weight: 45.4 kg

DRUGS (4)
  1. HUMIRA 40 MG/0.8 ML PEN [Suspect]
     Indication: CROHN^S DISEASE
     Dates: start: 200901, end: 201007
  2. HUMIRA 40 MG/0.8 ML PEN [Suspect]
     Dates: start: 201109, end: 201111
  3. HUMIRA 40 MG/0.8 ML PEN [Suspect]
     Dates: start: 201111
  4. LEXAPRO [Concomitant]
     Indication: DEPRESSION

REACTIONS (2)
  - Colon operation [Recovered/Resolved]
  - Crohn^s disease [Recovered/Resolved]
